FAERS Safety Report 16487615 (Version 1)
Quarter: 2019Q2

REPORT INFORMATION
  Report Type: Spontaneous
  Country: US (occurrence: US)
  Receive Date: 20190627
  Receipt Date: 20190627
  Transmission Date: 20190711
  Serious: No
  Sender: FDA-Public Use
  Company Number: US-NEXGEN PHARMA, INC.-2069728

PATIENT
  Sex: Female

DRUGS (1)
  1. BAC CAPSULE (ACETAMINOPHEN\BUTALBITAL\CAFFEINE) [Suspect]
     Active Substance: ACETAMINOPHEN\BUTALBITAL\CAFFEINE
     Route: 048

REACTIONS (1)
  - Rash [Unknown]
